FAERS Safety Report 7421397-4 (Version None)
Quarter: 2011Q2

REPORT INFORMATION
  Report Type: 
  Country: None (occurrence: None)
  Receive Date: 20110407
  Receipt Date: 20110405
  Transmission Date: 20111010
  Serious: Yes (Life-Threatening)
  Sender: FDA-Public Use
  Company Number: 2011SP015140

PATIENT
  Age: 2 Month
  Sex: Female

DRUGS (1)
  1. CELESTAMINE TAB [Suspect]
     Indication: PRODUCT USED FOR UNKNOWN INDICATION
     Dosage: 1 DF, TID, TRMA
     Route: 063
     Dates: start: 20110225, end: 20110301

REACTIONS (6)
  - DYSPNOEA [None]
  - DRUG EXPOSURE VIA BREAST MILK [None]
  - APNOEA [None]
  - BRADYCARDIA [None]
  - OXYGEN SATURATION DECREASED [None]
  - RESPIRATORY DISORDER [None]
